FAERS Safety Report 8392024-7 (Version None)
Quarter: 2012Q2

REPORT INFORMATION
  Report Type: 
  Country: None (occurrence: None)
  Receive Date: 20120525
  Receipt Date: 20120525
  Transmission Date: 20120825
  Serious: Yes (Other)
  Sender: FDA-Public Use
  Company Number: None

PATIENT

DRUGS (1)
  1. AMIODARONE HCL [Suspect]
     Dates: start: 20110603, end: 20120117

REACTIONS (14)
  - INSOMNIA [None]
  - FATIGUE [None]
  - SALIVARY HYPERSECRETION [None]
  - MUSCULAR WEAKNESS [None]
  - MACULAR DEGENERATION [None]
  - CONTUSION [None]
  - DECREASED APPETITE [None]
  - RHINORRHOEA [None]
  - DRUG HYPERSENSITIVITY [None]
  - FALL [None]
  - BALANCE DISORDER [None]
  - STRESS [None]
  - TREMOR [None]
  - HYPERHIDROSIS [None]
